FAERS Safety Report 13798119 (Version 1)
Quarter: 2017Q3

REPORT INFORMATION
  Report Type: Spontaneous
  Country: DE (occurrence: DE)
  Receive Date: 20170727
  Receipt Date: 20170727
  Transmission Date: 20171127
  Serious: Yes (Other)
  Sender: FDA-Public Use
  Company Number: DE-JNJFOC-20170719215

PATIENT
  Sex: Male

DRUGS (2)
  1. IMODIUM AKUT [Suspect]
     Active Substance: LOPERAMIDE
     Route: 065
  2. IMODIUM AKUT [Suspect]
     Active Substance: LOPERAMIDE
     Indication: DIARRHOEA
     Dosage: AT TWO INITIAL DOSE (S) FOLLOWED BY ONE DOSE(S) AND NOT MORE THAN SIX DOSE(S) DAILY
     Route: 065
     Dates: start: 201707

REACTIONS (1)
  - Haematochezia [Unknown]

NARRATIVE: CASE EVENT DATE: 201707
